FAERS Safety Report 6391424-4 (Version None)
Quarter: 2009Q4

REPORT INFORMATION
  Report Type: 
  Country: None (occurrence: None)
  Receive Date: 20091006
  Receipt Date: 20091006
  Transmission Date: 20100525
  Serious: Yes (Life-Threatening, Hospitalization)
  Sender: FDA-Public Use
  Company Number: None

PATIENT
  Sex: Female
  Weight: 77.3 kg

DRUGS (1)
  1. CUBICIN [Suspect]
     Indication: OSTEOMYELITIS
     Dosage: DAPTOMYCIN 500MG EVERY 24 HOURS IV
     Route: 042
     Dates: start: 20090828, end: 20090914

REACTIONS (3)
  - DRUG HYPERSENSITIVITY [None]
  - PNEUMONITIS [None]
  - RESPIRATORY FAILURE [None]
